FAERS Safety Report 8552961-7 (Version None)
Quarter: 2012Q3

REPORT INFORMATION
  Report Type: 
  Country: None (occurrence: None)
  Receive Date: 20120731
  Receipt Date: 20120717
  Transmission Date: 20120928
  Serious: Yes (Death, Hospitalization)
  Sender: FDA-Public Use
  Company Number: PT-MYLANLABS-2012S1015042

PATIENT
  Age: 9 Month
  Sex: Male

DRUGS (4)
  1. METHYLPREDNISOLONE [Suspect]
     Indication: GASTROINTESTINAL DISORDER
     Dosage: 2 MG/KG/DAY AT INITIATION
     Route: 042
  2. METHYLPREDNISOLONE [Suspect]
     Dosage: 1.5 MG/KG/DAY AT CESSATION
     Route: 042
  3. PREDNISOLONE [Suspect]
     Indication: GASTROINTESTINAL DISORDER
     Dosage: 1 MG/KG/DAY
     Route: 065
  4. TACROLIMUS [Suspect]
     Indication: GASTROINTESTINAL DISORDER
     Dosage: 0.06 MG/KG/DAY
     Route: 065

REACTIONS (3)
  - MULTI-ORGAN FAILURE [None]
  - ESCHERICHIA INFECTION [None]
  - SEPTIC SHOCK [None]
